FAERS Safety Report 15460469 (Version 1)
Quarter: 2018Q4

REPORT INFORMATION
  Report Type: Spontaneous
  Country: US (occurrence: US)
  Receive Date: 20181001
  Receipt Date: 20181001
  Transmission Date: 20190204
  Serious: Yes (Other)
  Sender: FDA-Public Use
  Company Number: None

PATIENT
  Sex: Female

DRUGS (2)
  1. DILTIAZEM SR CAP 60MG 12HR [Suspect]
     Active Substance: DILTIAZEM
     Indication: ATRIAL FIBRILLATION
     Route: 048
     Dates: start: 20170223, end: 20181001
  2. QUINIDINE [Concomitant]
     Active Substance: QUINIDINE
     Dates: start: 20170223, end: 20181001

REACTIONS (1)
  - Drug ineffective [None]
